FAERS Safety Report 5465559-4 (Version None)
Quarter: 2007Q3

REPORT INFORMATION
  Report Type: 
  Country: None (occurrence: None)
  Receive Date: 20070919
  Receipt Date: 20070905
  Transmission Date: 20080115
  Serious: Yes (Hospitalization)
  Sender: FDA-Public Use
  Company Number: B0486949A

PATIENT
  Age: 7 Month
  Sex: Female

DRUGS (4)
  1. COMBIVIR [Suspect]
     Indication: HIV INFECTION
     Dosage: TRANSPLACENTARY
     Route: 064
  2. NEVIRAPINE [Suspect]
     Indication: HIV INFECTION
     Dosage: TRANSPLACENTARY
     Route: 064
  3. FERROUS SULFATE TAB [Suspect]
  4. ZIDOVUDINE [Suspect]
     Indication: ANTIVIRAL PROPHYLAXIS
     Dosage: 4 MG/KG / TWICE PER DAY/ ORAL
     Route: 048

REACTIONS (12)
  - ACIDOSIS [None]
  - BLOOD AMINO ACID LEVEL INCREASED [None]
  - BLOOD GLUCOSE DECREASED [None]
  - CAESAREAN SECTION [None]
  - CONSCIOUSNESS FLUCTUATING [None]
  - DRUG EXPOSURE DURING PREGNANCY [None]
  - FOETAL GROWTH RETARDATION [None]
  - GRUNTING [None]
  - LETHARGY [None]
  - PALLOR [None]
  - POOR WEIGHT GAIN NEONATAL [None]
  - RHINITIS [None]
